FAERS Safety Report 14652118 (Version 1)
Quarter: 2018Q1

REPORT INFORMATION
  Report Type: Spontaneous
  Country: RU (occurrence: RU)
  Receive Date: 20180318
  Receipt Date: 20180318
  Transmission Date: 20180509
  Serious: Yes (Hospitalization, Other)
  Sender: FDA-Public Use
  Company Number: RU-ASTRAZENECA-2018SE32748

PATIENT
  Age: 80 Year
  Sex: Female
  Weight: 75 kg

DRUGS (5)
  1. THROMBO ASS [Concomitant]
     Active Substance: ASPIRIN
  2. BETALOC [Concomitant]
     Active Substance: METOPROLOL TARTRATE
  3. CRESTOR [Concomitant]
     Active Substance: ROSUVASTATIN CALCIUM
  4. BRILINTA [Suspect]
     Active Substance: TICAGRELOR
     Indication: MYOCARDIAL INFARCTION
     Route: 048
     Dates: start: 201703
  5. DIUVER [Concomitant]
     Active Substance: TORSEMIDE

REACTIONS (2)
  - Angina unstable [Not Recovered/Not Resolved]
  - Vascular stent thrombosis [Unknown]

NARRATIVE: CASE EVENT DATE: 201712
